FAERS Safety Report 7087029-2 (Version None)
Quarter: 2010Q4

REPORT INFORMATION
  Report Type: 
  Country: None (occurrence: None)
  Receive Date: 20101106
  Receipt Date: 20101012
  Transmission Date: 20110411
  Serious: No
  Sender: FDA-Public Use
  Company Number: US-WYE-H18159010

PATIENT
  Sex: Female
  Weight: 49.94 kg

DRUGS (6)
  1. PREMARIN [Suspect]
     Indication: HYSTERECTOMY
     Route: 048
     Dates: start: 19750101
  2. PREMARIN [Suspect]
     Dosage: REDUCED TO 0.625 MG IN LATE 80'S
     Route: 048
  3. PREMARIN [Suspect]
     Dosage: INCREASED BACK TO 1.25 MG IN LATE 80'S
     Route: 048
  4. SIMVASTATIN [Concomitant]
  5. SKELAXIN [Concomitant]
  6. ATENOLOL [Concomitant]

REACTIONS (10)
  - BRUXISM [None]
  - DRUG WITHDRAWAL SYNDROME [None]
  - GASTROOESOPHAGEAL REFLUX DISEASE [None]
  - MIGRAINE [None]
  - MOOD SWINGS [None]
  - MUSCLE TIGHTNESS [None]
  - NIGHTMARE [None]
  - OSTEOARTHRITIS [None]
  - OSTEOPENIA [None]
  - VULVOVAGINAL DRYNESS [None]
